FAERS Safety Report 24127995 (Version 3)
Quarter: 2024Q3

REPORT INFORMATION
  Report Type: Spontaneous
  Country: US (occurrence: US)
  Receive Date: 20240723
  Receipt Date: 20240820
  Transmission Date: 20241017
  Serious: No
  Sender: SANOFI AVENTIS
  Company Number: US-SA-SAC20240717000272

PATIENT
  Age: 1 Year
  Sex: Female
  Weight: 12.7 kg

DRUGS (3)
  1. DUPIXENT [Suspect]
     Active Substance: DUPILUMAB
     Indication: Dermatitis atopic
     Dosage: 200 MG, Q4W
     Route: 058
  2. DUPIXENT [Suspect]
     Active Substance: DUPILUMAB
     Dosage: UNK UNK, QOW
  3. HYDROXYZINE HYDROCHLORIDE [Concomitant]
     Active Substance: HYDROXYZINE HYDROCHLORIDE
     Dosage: UNK

REACTIONS (10)
  - Skin irritation [Recovering/Resolving]
  - Dermatitis diaper [Recovering/Resolving]
  - Vulvovaginal mycotic infection [Recovering/Resolving]
  - Genital erythema [Recovering/Resolving]
  - Skin burning sensation [Recovering/Resolving]
  - Nasopharyngitis [Unknown]
  - Scratch [Recovering/Resolving]
  - Therapeutic response shortened [Recovering/Resolving]
  - Rash [Not Recovered/Not Resolved]
  - Inappropriate schedule of product administration [Unknown]
